FAERS Safety Report 15933947 (Version 3)
Quarter: 2019Q3

REPORT INFORMATION
  Report Type: Spontaneous
  Country: US (occurrence: US)
  Receive Date: 20190207
  Receipt Date: 20190827
  Transmission Date: 20191004
  Serious: No
  Sender: FDA-Public Use
  Company Number: US-SA-2019SA030368

PATIENT
  Age: 22 Year
  Sex: Female
  Weight: 72.57 kg

DRUGS (2)
  1. XYZAL [Concomitant]
     Active Substance: LEVOCETIRIZINE DIHYDROCHLORIDE
     Dosage: 5 MG
     Route: 048
  2. DUPIXENT [Suspect]
     Active Substance: DUPILUMAB
     Indication: DERMATITIS ATOPIC
     Dosage: UNK, UNK
     Route: 058
     Dates: start: 201810

REACTIONS (2)
  - Product dose omission [Unknown]
  - Dermatitis [Unknown]

NARRATIVE: CASE EVENT DATE: 20190630
